FAERS Safety Report 21308646 (Version 3)
Quarter: 2023Q1

REPORT INFORMATION
  Report Type: Spontaneous
  Country: US (occurrence: US)
  Receive Date: 20220908
  Receipt Date: 20230209
  Transmission Date: 20230417
  Serious: Yes (Life-Threatening, Other)
  Sender: FDA-Public Use
  Company Number: US-PFIZER INC-PV202200055410

PATIENT
  Age: 68 Year
  Sex: Male

DRUGS (1)
  1. HEPARIN SODIUM [Suspect]
     Active Substance: HEPARIN SODIUM
     Indication: Endocarditis
     Dosage: UNK
     Route: 041

REACTIONS (2)
  - Haematoma [Recovered/Resolved]
  - Femoral nerve palsy [Unknown]
